FAERS Safety Report 5230400-1 (Version None)
Quarter: 2007Q1

REPORT INFORMATION
  Report Type: 
  Country: None (occurrence: None)
  Receive Date: 20070201
  Receipt Date: 20070116
  Transmission Date: 20070707
  Serious: Yes (Other)
  Sender: FDA-Public Use
  Company Number: 2007EU000179

PATIENT
  Age: 31 Year
  Sex: Male

DRUGS (2)
  1. PROGRAF [Suspect]
     Indication: HEART TRANSPLANT
     Dosage: 1 MG, D
  2. MYCOPHENOLATE MOFETIL [Suspect]
     Indication: HEART TRANSPLANT
     Dosage: SEE IMAGE

REACTIONS (9)
  - BLOOD PRESSURE DIASTOLIC INCREASED [None]
  - BLOOD THYROID STIMULATING HORMONE DECREASED [None]
  - CEREBELLAR ATROPHY [None]
  - CEREBELLAR SYNDROME [None]
  - IMMUNOSUPPRESSANT DRUG LEVEL INCREASED [None]
  - THERAPEUTIC AGENT TOXICITY [None]
  - THYROTOXIC CRISIS [None]
  - THYROXINE INCREASED [None]
  - TRANSPLANT REJECTION [None]
